FAERS Safety Report 24451312 (Version 1)
Quarter: 2024Q4

REPORT INFORMATION
  Report Type: Report from Study
  Country: US (occurrence: US)
  Receive Date: 20241017
  Receipt Date: 20241017
  Transmission Date: 20250115
  Serious: No
  Sender: BIOVITRUM
  Company Number: US-BIOVITRUM-2024-US-011176

PATIENT
  Age: 39 Year
  Sex: Female

DRUGS (2)
  1. KINERET [Suspect]
     Active Substance: ANAKINRA
     Indication: Rheumatoid arthritis
     Dosage: QD (DAILY)
     Route: 058
     Dates: start: 20240828
  2. KINERET [Suspect]
     Active Substance: ANAKINRA
     Dosage: DAILY
     Route: 058
     Dates: start: 20240824

REACTIONS (10)
  - Product dose omission issue [Unknown]
  - Sinusitis [Unknown]
  - Headache [Unknown]
  - Injection site pruritus [Unknown]
  - Injection site erythema [Unknown]
  - Injection site swelling [Unknown]
  - Loss of personal independence in daily activities [Unknown]
  - Depression [Unknown]
  - Fibromyalgia [Unknown]
  - Drug ineffective [Unknown]
